FAERS Safety Report 5413193-4 (Version None)
Quarter: 2007Q3

REPORT INFORMATION
  Report Type: 
  Country: None (occurrence: None)
  Receive Date: 20070814
  Receipt Date: 20070808
  Transmission Date: 20080115
  Serious: Yes (Other)
  Sender: FDA-Public Use
  Company Number: PHEH2007US10591

PATIENT
  Age: 30 Year
  Sex: Male

DRUGS (2)
  1. TRILEPTAL [Suspect]
     Indication: PARTIAL SEIZURES
     Dosage: 3600 MG, UNK
     Route: 048
     Dates: start: 20040101, end: 20070701
  2. TRILEPTAL [Suspect]
     Dosage: 4200 MG, UNK
     Route: 048
     Dates: start: 20070701

REACTIONS (4)
  - DANDRUFF [None]
  - GRAND MAL CONVULSION [None]
  - MEDICAL DEVICE IMPLANTATION [None]
  - PARTIAL SEIZURES [None]
